FAERS Safety Report 17505617 (Version 3)
Quarter: 2020Q1

REPORT INFORMATION
  Report Type: Spontaneous
  Country: TR (occurrence: TR)
  Receive Date: 20200305
  Receipt Date: 20200323
  Transmission Date: 20200409
  Serious: Yes (Hospitalization)
  Sender: FDA-Public Use
  Company Number: TR-AMERICAN REGENT INC-2020000603

PATIENT
  Age: 60 Year
  Sex: Female
  Weight: 80 kg

DRUGS (1)
  1. FERINJECT [Suspect]
     Active Substance: FERRIC CARBOXYMALTOSE
     Indication: ANAEMIA
     Dosage: 2 AMPOULES (1000 MG)
     Route: 042
     Dates: start: 20200219, end: 20200219

REACTIONS (2)
  - Blood lactate dehydrogenase increased [Recovered/Resolved]
  - Haemolysis [Recovered/Resolved]

NARRATIVE: CASE EVENT DATE: 20200222
